FAERS Safety Report 16442992 (Version 1)
Quarter: 2019Q2

REPORT INFORMATION
  Report Type: Spontaneous
  Country: IT (occurrence: IT)
  Receive Date: 20190617
  Receipt Date: 20190617
  Transmission Date: 20190711
  Serious: Yes (Hospitalization)
  Sender: FDA-Public Use
  Company Number: PHHY2019IT137884

PATIENT
  Age: 79 Year
  Sex: Male
  Weight: 66 kg

DRUGS (4)
  1. DEXAMETHASONE. [Concomitant]
     Active Substance: DEXAMETHASONE
     Indication: PRODUCT USED FOR UNKNOWN INDICATION
     Dosage: 8 MG, CYCLIC
     Route: 042
     Dates: start: 20190423, end: 20190514
  2. CAPECITABINE. [Concomitant]
     Active Substance: CAPECITABINE
     Indication: ADENOCARCINOMA OF COLON
     Dosage: 42000 MG, CYCLIC
     Route: 048
     Dates: start: 20190423
  3. ONDANSETRON HYDROCHLORIDE. [Concomitant]
     Active Substance: ONDANSETRON HYDROCHLORIDE
     Indication: PRODUCT USED FOR UNKNOWN INDICATION
     Dosage: 8 MG, UNK
     Route: 042
  4. OXALIPLATIN. [Suspect]
     Active Substance: OXALIPLATIN
     Indication: ADENOCARCINOMA OF COLON
     Dosage: 200 MG, CYCLIC
     Route: 042
     Dates: start: 20190423, end: 20190514

REACTIONS (3)
  - Dysphonia [Recovered/Resolved]
  - Muscle rigidity [Recovered/Resolved]
  - Tremor [Recovered/Resolved]

NARRATIVE: CASE EVENT DATE: 20190514
